FAERS Safety Report 5328084-7 (Version None)
Quarter: 2007Q2

REPORT INFORMATION
  Report Type: 
  Country: None (occurrence: None)
  Receive Date: 20070517
  Receipt Date: 20070510
  Transmission Date: 20071010
  Serious: Yes (Life-Threatening)
  Sender: FDA-Public Use
  Company Number: DE-MERCK-0705USA02364

PATIENT
  Age: 8 Year
  Sex: Male

DRUGS (1)
  1. DECADRON [Suspect]
     Route: 048

REACTIONS (2)
  - EPSTEIN-BARR VIRUS INFECTION [None]
  - LYMPHOHISTIOCYTOSIS [None]
